FAERS Safety Report 24540796 (Version 1)
Quarter: 2024Q4

REPORT INFORMATION
  Report Type: Spontaneous
  Country: US (occurrence: None)
  Receive Date: 20241023
  Receipt Date: 20241023
  Transmission Date: 20250115
  Serious: Yes (Other)
  Sender: Public
  Company Number: None

PATIENT
  Age: 72 Year
  Sex: Female
  Weight: 96.62 kg

DRUGS (4)
  1. METOPROLOL TARTRATE [Suspect]
     Active Substance: METOPROLOL TARTRATE
     Dosage: OTHER FREQUENCY : DID 1/2 PILL MORNING AND  NIGHT?
     Route: 048
  2. XARELTO [Suspect]
  3. ELIQUIS [Suspect]
  4. BABY ASPIRIN [Suspect]

REACTIONS (14)
  - Diarrhoea [None]
  - Transient ischaemic attack [None]
  - Nightmare [None]
  - Discomfort [None]
  - Chest pain [None]
  - Fatigue [None]
  - Headache [None]
  - Dizziness [None]
  - Arthralgia [None]
  - Back pain [None]
  - Hypertension [None]
  - Night sweats [None]
  - Amnesia [None]
  - Incontinence [None]

NARRATIVE: CASE EVENT DATE: 20240724
